FAERS Safety Report 5623369-9 (Version None)
Quarter: 2008Q1

REPORT INFORMATION
  Report Type: 
  Country: None (occurrence: None)
  Receive Date: 20080212
  Receipt Date: 20080128
  Transmission Date: 20080703
  Serious: Yes (Other)
  Sender: FDA-Public Use
  Company Number: US-PFIZER INC-2008010294

PATIENT
  Sex: Female
  Weight: 54.4 kg

DRUGS (4)
  1. CHANTIX [Suspect]
     Indication: SMOKING CESSATION THERAPY
     Dates: start: 20070101, end: 20070101
  2. CARDIOVASCULAR SYSTEM DRUGS [Concomitant]
  3. ZYRTEC [Concomitant]
  4. VITAMIN B [Concomitant]

REACTIONS (5)
  - ASTHENIA [None]
  - GALLBLADDER DISORDER [None]
  - MALAISE [None]
  - VOMITING [None]
  - WEIGHT INCREASED [None]
